FAERS Safety Report 14176888 (Version 2)
Quarter: 2017Q4

REPORT INFORMATION
  Report Type: Spontaneous
  Country: US (occurrence: US)
  Receive Date: 20171110
  Receipt Date: 20171130
  Transmission Date: 20180321
  Serious: Yes (Hospitalization, Other)
  Sender: FDA-Public Use
  Company Number: US-009507513-1711USA001344

PATIENT
  Sex: Male

DRUGS (5)
  1. STERILE DILUENT [Suspect]
     Active Substance: WATER
     Dosage: UNK
     Dates: start: 20171030, end: 201711
  2. VINBLASTINE SULFATE. [Concomitant]
     Active Substance: VINBLASTINE SULFATE
     Dosage: UNK
  3. DACARBAZINE. [Concomitant]
     Active Substance: DACARBAZINE
     Dosage: UNK
  4. CISPLATIN. [Concomitant]
     Active Substance: CISPLATIN
     Dosage: UNK
  5. INTRON A [Suspect]
     Active Substance: INTERFERON ALFA-2B
     Indication: MALIGNANT MELANOMA
     Dosage: 10 MILLION IU DAILY FOR 3 DAYS
     Dates: start: 20171030, end: 201711

REACTIONS (1)
  - Seizure [Unknown]

NARRATIVE: CASE EVENT DATE: 20171101
